FAERS Safety Report 9551128 (Version 2)
Quarter: 2013Q3

REPORT INFORMATION
  Report Type: Report from Study
  Country: ZW (occurrence: ZW)
  Receive Date: 20130925
  Receipt Date: 20130925
  Transmission Date: 20140515
  Serious: Yes (Hospitalization)
  Sender: FDA-Public Use
  Company Number: ZW-009507513-1101USA01823

PATIENT
  Sex: Male

DRUGS (9)
  1. RALTEGRAVIR POTASSIUM [Suspect]
     Indication: HIV INFECTION
     Route: 048
     Dates: start: 20101116
  2. ALUVIA [Suspect]
     Indication: HIV INFECTION
     Dates: start: 20101116
  3. RIFABUTIN [Concomitant]
     Dates: start: 20101104
  4. ISONIAZID [Concomitant]
     Dates: start: 20101104
  5. ETHAMBUTOL HYDROCHLORIDE [Concomitant]
     Dates: start: 20101104
  6. PYRAZINAMIDE [Concomitant]
     Dates: start: 20101104
  7. EFAVIRENZ [Concomitant]
     Dosage: UNK
     Route: 048
     Dates: start: 20101104, end: 20101116
  8. ZIDOVUDINE [Concomitant]
     Dosage: UNK
     Dates: start: 20091215, end: 20101116
  9. LAMIVUDINE [Concomitant]
     Dosage: UNK
     Dates: start: 20091215, end: 20101116

REACTIONS (3)
  - Lethargy [Recovered/Resolved]
  - Decreased appetite [Recovered/Resolved]
  - Pruritus [Recovered/Resolved]
